FAERS Safety Report 9414657 (Version 2)
Quarter: 2013Q3

REPORT INFORMATION
  Report Type: Spontaneous
  Country: US (occurrence: None)
  Receive Date: 20130717
  Receipt Date: 20130912
  Transmission Date: 20140515
  Serious: Yes (Other)
  Sender: FDA-Public Use
  Company Number: ACO_36155_2013

PATIENT
  Age: 50 Year
  Sex: Female
  Weight: 55.3 kg

DRUGS (1)
  1. AMPYRA (DALFAMPRIDINE) [Suspect]
     Indication: GAIT DISTURBANCE
     Route: 048

REACTIONS (1)
  - Bladder cancer [None]
